FAERS Safety Report 9664748 (Version 4)
Quarter: 2013Q4

REPORT INFORMATION
  Report Type: Spontaneous
  Country: JP (occurrence: None)
  Receive Date: 20131031
  Receipt Date: 20131129
  Transmission Date: 20140711
  Serious: Yes (Hospitalization)
  Sender: FDA-Public Use
  Company Number: VAL_02790_2013

PATIENT
  Age: 38 Year
  Sex: Female

DRUGS (2)
  1. METHYLERGOMETRINE [Suspect]
     Indication: PRODUCT USED FOR UNKNOWN INDICATION
     Dosage: DF (ON DAY 2 - 6 AFTER DELIVERY); 5 DAYS UNTIL NOT CONTINUING
     Route: 048
  2. KAKKONTOU [Suspect]
     Indication: PRODUCT USED FOR UNKNOWN INDICATION
     Dosage: DF; (DAY 3-7 AFTER DELIVERY); 5 DAYS UNTIL NOT CONTINUING
     Route: 048

REACTIONS (10)
  - Cerebral vasoconstriction [None]
  - Status epilepticus [None]
  - Headache [None]
  - Musculoskeletal stiffness [None]
  - Altered state of consciousness [None]
  - Neck pain [None]
  - Malaise [None]
  - Blood glucose increased [None]
  - Progressive multifocal leukoencephalopathy [None]
  - Blood creatine phosphokinase increased [None]
